FAERS Safety Report 12366583 (Version 2)
Quarter: 2016Q2

REPORT INFORMATION
  Report Type: Spontaneous
  Country: US (occurrence: US)
  Receive Date: 20160513
  Receipt Date: 20160516
  Transmission Date: 20160815
  Serious: No
  Sender: FDA-Public Use
  Company Number: US-BAYER-2016-093281

PATIENT
  Age: 85 Year
  Sex: Female

DRUGS (3)
  1. FENTANYL. [Concomitant]
     Active Substance: FENTANYL
  2. OXYCODONE [Concomitant]
     Active Substance: OXYCODONE
     Dosage: 1 DF, QID
  3. ALEVE PM [Suspect]
     Active Substance: DIPHENHYDRAMINE HYDROCHLORIDE\NAPROXEN SODIUM
     Dosage: UNK
     Dates: start: 20160508

REACTIONS (7)
  - Insomnia [None]
  - Agitation [None]
  - Feeling abnormal [None]
  - Nausea [None]
  - Product use issue [None]
  - Anxiety [None]
  - Disorientation [None]

NARRATIVE: CASE EVENT DATE: 20160508
